FAERS Safety Report 5139434-9 (Version None)
Quarter: 2006Q4

REPORT INFORMATION
  Report Type: 
  Country: None (occurrence: None)
  Receive Date: 20061030
  Receipt Date: 20060418
  Transmission Date: 20070319
  Serious: No
  Sender: FDA-Public Use
  Company Number: US-GLAXOSMITHKLINE-A0602171A

PATIENT
  Age: 58 Year
  Sex: Female

DRUGS (4)
  1. SEREVENT [Suspect]
     Indication: ASTHMA
     Route: 055
  2. QVAR 40 [Concomitant]
  3. ALUPENT [Concomitant]
  4. ALBUTEROL [Concomitant]

REACTIONS (1)
  - ALOPECIA [None]
